FAERS Safety Report 7275197-9 (Version None)
Quarter: 2011Q1

REPORT INFORMATION
  Report Type: 
  Country: None (occurrence: None)
  Receive Date: 20110204
  Receipt Date: 20110126
  Transmission Date: 20110831
  Serious: Yes (Other)
  Sender: FDA-Public Use
  Company Number: PHFR2011GB00976

PATIENT

DRUGS (1)
  1. NEORAL [Suspect]
     Indication: ANAEMIA HAEMOLYTIC AUTOIMMUNE
     Dosage: UNK

REACTIONS (3)
  - INTESTINAL INFARCTION [None]
  - SEPSIS [None]
  - MALAISE [None]
